FAERS Safety Report 22670121 (Version 3)
Quarter: 2023Q4

REPORT INFORMATION
  Report Type: Report from Study
  Country: US (occurrence: US)
  Receive Date: 20230704
  Receipt Date: 20231031
  Transmission Date: 20240110
  Serious: Yes (Hospitalization, Other)
  Sender: FDA-Public Use
  Company Number: US-ABBVIE-4723220

PATIENT
  Sex: Female

DRUGS (4)
  1. HUMIRA [Suspect]
     Active Substance: ADALIMUMAB
     Indication: Psoriatic arthropathy
     Dosage: FORM STRENGTH: 40 MG?CITRATE FREE
     Route: 058
     Dates: start: 2021, end: 20220407
  2. HUMIRA [Suspect]
     Active Substance: ADALIMUMAB
     Dosage: FORM STRENGTH: 40 MG, FIRST ADMIN DATE- 2022?CITRATE FREE
     Route: 058
     Dates: end: 202301
  3. HUMIRA [Suspect]
     Active Substance: ADALIMUMAB
     Dosage: CITRATE FREE
     Route: 058
     Dates: start: 20230519
  4. HUMIRA [Suspect]
     Active Substance: ADALIMUMAB
     Dosage: FORM STRENGTH: 40 MG ?CITRATE FREE
     Route: 058
     Dates: start: 2023, end: 2023

REACTIONS (14)
  - Uterine leiomyoma [Not Recovered/Not Resolved]
  - Anxiety [Unknown]
  - Streptococcal infection [Unknown]
  - Arthritis [Unknown]
  - Influenza [Unknown]
  - Hypersomnia [Unknown]
  - Upper respiratory tract infection [Unknown]
  - Sinusitis [Recovered/Resolved]
  - Post-traumatic stress disorder [Recovering/Resolving]
  - Surgery [Recovered/Resolved]
  - COVID-19 [Unknown]
  - Sinusitis [Recovering/Resolving]
  - Immunosuppression [Unknown]
  - Therapeutic product effect decreased [Unknown]

NARRATIVE: CASE EVENT DATE: 20210101
